FAERS Safety Report 24148414 (Version 3)
Quarter: 2024Q4

REPORT INFORMATION
  Report Type: Spontaneous
  Country: US (occurrence: US)
  Receive Date: 20240729
  Receipt Date: 20241219
  Transmission Date: 20250115
  Serious: Yes (Other)
  Sender: BRISTOL-MYERS SQUIBB COMPANY
  Company Number: US-BRISTOL-MYERS SQUIBB COMPANY-2024-119680

PATIENT
  Age: 58 Year
  Sex: Male
  Weight: 106.14 kg

DRUGS (2)
  1. POMALYST [Suspect]
     Active Substance: POMALIDOMIDE
     Indication: Plasma cell myeloma
     Route: 048
  2. POMALYST [Suspect]
     Active Substance: POMALIDOMIDE
     Route: 048

REACTIONS (4)
  - Laboratory test abnormal [Unknown]
  - Endoscopic retrograde cholangiopancreatography abnormal [Unknown]
  - Liver function test increased [Unknown]
  - Gallbladder disorder [Unknown]
